FAERS Safety Report 9721744 (Version 1)
Quarter: 2013Q4

REPORT INFORMATION
  Report Type: Spontaneous
  Country: US (occurrence: US)
  Receive Date: 20131201
  Receipt Date: 20131201
  Transmission Date: 20140711
  Serious: No
  Sender: FDA-Public Use
  Company Number: US-ABBVIE-13P-163-1165089-00

PATIENT
  Age: 52 Year
  Sex: Male
  Weight: 72.64 kg

DRUGS (1)
  1. ANDROGEL [Suspect]
     Indication: BLOOD TESTOSTERONE DECREASED
     Dosage: 40.5 MILLIGRAMS DAILY
     Route: 061
     Dates: start: 201306

REACTIONS (1)
  - Blood testosterone abnormal [Not Recovered/Not Resolved]
